FAERS Safety Report 15731592 (Version 2)
Quarter: 2019Q1

REPORT INFORMATION
  Report Type: Spontaneous
  Country: BR (occurrence: BR)
  Receive Date: 20181217
  Receipt Date: 20190109
  Transmission Date: 20190417
  Serious: Yes (Other)
  Sender: FDA-Public Use
  Company Number: BR-SANIK-2018SA341058AA

PATIENT
  Age: 66 Year
  Sex: Female
  Weight: 82 kg

DRUGS (11)
  1. LOSARTAN POTASSIUM. [Suspect]
     Active Substance: LOSARTAN POTASSIUM
     Indication: HYPERTENSION
     Dosage: 2 DF, QD
     Route: 048
     Dates: start: 2008
  2. SIMVASTATIN. [Suspect]
     Active Substance: SIMVASTATIN
     Indication: BLOOD CHOLESTEROL
     Dosage: 2 DF, QD
     Route: 048
     Dates: start: 2008
  3. METFORMIN HYDROCHLORIDE. [Suspect]
     Active Substance: METFORMIN HYDROCHLORIDE
     Indication: TYPE 2 DIABETES MELLITUS
     Dosage: 2 DF, QD
     Route: 048
     Dates: start: 2008
  4. DIOSMIN/HESPERIDIN [Suspect]
     Active Substance: DIOSMIN\HESPERIDIN
     Indication: VARICOSE VEIN
     Dosage: 2 DF, QD
     Route: 048
     Dates: start: 2008
  5. APIDRA SOLOSTAR [Concomitant]
     Active Substance: INSULIN GLULISINE
     Indication: TYPE 2 DIABETES MELLITUS
     Dosage: UNK UNK, TID, 3 TIMES DAILY (A MEAN OF 14 AND THE MAXIMUM OF 16 IU PER INJECTION)
     Route: 058
     Dates: start: 200803
  6. CIPROFIBRATE [Suspect]
     Active Substance: CIPROFIBRATE
     Indication: BLOOD CHOLESTEROL
     Dosage: 1 DF, QD
     Route: 048
     Dates: start: 2008
  7. ATENOLOL. [Suspect]
     Active Substance: ATENOLOL
     Indication: HYPERTENSION
     Dosage: 2 DF, QD
     Route: 048
     Dates: start: 2008
  8. CILOSTAZOL. [Suspect]
     Active Substance: CILOSTAZOL
     Dosage: 2 DF, QD
     Route: 048
     Dates: start: 2008
  9. PANTOPRAZOLE [Suspect]
     Active Substance: PANTOPRAZOLE
     Indication: ABDOMINAL DISCOMFORT
     Dosage: 1 DF, QD
     Route: 048
     Dates: start: 2008
  10. CLOPIDOGREL BISULFATE. [Suspect]
     Active Substance: CLOPIDOGREL BISULFATE
     Indication: ANTICOAGULANT THERAPY
     Dosage: 1 DF, QD
     Route: 048
     Dates: start: 2008
  11. AMLODIPINE [Suspect]
     Active Substance: AMLODIPINE BESYLATE
     Indication: HYPERTENSION
     Dosage: 1 DF, QD
     Route: 048
     Dates: start: 2008

REACTIONS (2)
  - Surgery [Unknown]
  - Carotid artery occlusion [Recovering/Resolving]

NARRATIVE: CASE EVENT DATE: 2012
